FAERS Safety Report 5855741-6 (Version None)
Quarter: 2008Q3

REPORT INFORMATION
  Report Type: 
  Country: None (occurrence: None)
  Receive Date: 20080825
  Receipt Date: 20080815
  Transmission Date: 20090109
  Serious: Yes (Other)
  Sender: FDA-Public Use
  Company Number: HQWYE188816JUL04

PATIENT
  Sex: Female

DRUGS (6)
  1. PREMPRO [Suspect]
  2. DEPO-ESTRADIOL [Suspect]
  3. MEDROXYPROGESTERONE ACETATE [Suspect]
     Indication: HORMONE REPLACEMENT THERAPY
  4. MEDROXYPROGESTERONE ACETATE [Suspect]
     Indication: MENOPAUSE
  5. PREMARIN [Suspect]
  6. MEDROXYPROGESTERONE ACETATE [Suspect]

REACTIONS (1)
  - BREAST CANCER METASTATIC [None]
